FAERS Safety Report 23769552 (Version 1)
Quarter: 2024Q2

REPORT INFORMATION
  Report Type: Spontaneous
  Country: US (occurrence: None)
  Receive Date: 20240421
  Receipt Date: 20240421
  Transmission Date: 20240715
  Serious: Yes (Life-Threatening, Hospitalization)
  Sender: FDA-Public Use
  Company Number: None

PATIENT
  Age: 59 Year
  Sex: Female

DRUGS (2)
  1. EVEROLIMUS [Suspect]
     Active Substance: EVEROLIMUS
     Dosage: FREQUENCY : DAILY;?
     Route: 048
     Dates: start: 20230209
  2. EXEMESTANE [Concomitant]
     Active Substance: EXEMESTANE

REACTIONS (5)
  - Hyperglycaemia [None]
  - Hypokalaemia [None]
  - Blood creatinine increased [None]
  - Proteinuria [None]
  - Acute kidney injury [None]

NARRATIVE: CASE EVENT DATE: 20230530
